FAERS Safety Report 15615705 (Version 4)
Quarter: 2022Q1

REPORT INFORMATION
  Report Type: Spontaneous
  Country: ES (occurrence: ES)
  Receive Date: 20181114
  Receipt Date: 20220314
  Transmission Date: 20220423
  Serious: Yes (Hospitalization, Other)
  Sender: FDA-Public Use
  Company Number: ES-AEMPS-401652

PATIENT
  Age: 43 Year
  Sex: Female

DRUGS (4)
  1. CELECOXIB [Suspect]
     Active Substance: CELECOXIB
     Indication: Pain in extremity
     Dosage: UNK
     Route: 048
     Dates: start: 20180501
  2. CELECOXIB [Suspect]
     Active Substance: CELECOXIB
     Indication: Meniscus injury
     Dosage: 200 MILLIGRAM, ONCE A DAY
     Route: 065
  3. CHONDROITIN SULFATE (BOVINE) [Concomitant]
     Active Substance: CHONDROITIN SULFATE (BOVINE)
     Indication: Meniscus injury
     Dosage: 400 MILLIGRAM, ONCE A DAY
     Route: 065
  4. METAMIZOLE SODIUM [Concomitant]
     Active Substance: METAMIZOLE SODIUM
     Indication: Meniscus injury
     Dosage: 1725 MILLIGRAM, ONCE A DAY
     Route: 065

REACTIONS (1)
  - Bipolar disorder [Recovering/Resolving]

NARRATIVE: CASE EVENT DATE: 20180703
